FAERS Safety Report 4330172-9 (Version None)
Quarter: 2004Q1

REPORT INFORMATION
  Report Type: 
  Country: None (occurrence: None)
  Receive Date: 20040329
  Receipt Date: 20040315
  Transmission Date: 20041129
  Serious: Yes (Death)
  Sender: FDA-Public Use
  Company Number: 2004AC00026

PATIENT
  Age: 3 Year
  Sex: Female
  Weight: 16 kg

DRUGS (2)
  1. PROPOFOL [Suspect]
     Indication: SEDATION
     Dosage: 20 MG/KG/HR
  2. PROPOFOL [Suspect]
     Indication: SEDATION
     Dosage: 4.2 MG/KG/HR

REACTIONS (27)
  - ALANINE AMINOTRANSFERASE INCREASED [None]
  - ARRHYTHMIA [None]
  - ASPARTATE AMINOTRANSFERASE INCREASED [None]
  - BASE EXCESS [None]
  - BLOOD CREATINE PHOSPHOKINASE INCREASED [None]
  - BLOOD LACTIC ACID INCREASED [None]
  - BLOOD PRESSURE DECREASED [None]
  - BODY TEMPERATURE INCREASED [None]
  - BRADYCARDIA [None]
  - BRONCHOSPASM [None]
  - BUNDLE BRANCH BLOCK RIGHT [None]
  - CARDIAC ARREST [None]
  - CARDIAC FAILURE [None]
  - CARDIAC OUTPUT DECREASED [None]
  - CONDUCTION DISORDER [None]
  - DRUG TOXICITY [None]
  - ELECTROCARDIOGRAM QRS COMPLEX PROLONGED [None]
  - HEART RATE INCREASED [None]
  - HYPOXIA [None]
  - LIPIDS INCREASED [None]
  - MEDICATION ERROR [None]
  - METABOLIC ACIDOSIS [None]
  - MIOSIS [None]
  - OVERDOSE [None]
  - PULSE ABNORMAL [None]
  - RESPIRATORY ACIDOSIS [None]
  - VENTRICULAR EXTRASYSTOLES [None]
